FAERS Safety Report 4690757-7 (Version None)
Quarter: 2005Q2

REPORT INFORMATION
  Report Type: 
  Country: None (occurrence: None)
  Receive Date: 20050615
  Receipt Date: 20050609
  Transmission Date: 20051028
  Serious: Yes (Other)
  Sender: FDA-Public Use
  Company Number: NO-MERCK-0506NOR00014

PATIENT
  Age: 50 Year
  Sex: Male

DRUGS (6)
  1. VIOXX [Suspect]
     Indication: OSTEOARTHRITIS
     Route: 048
     Dates: start: 20010528, end: 20030911
  2. VIOXX [Suspect]
     Route: 048
     Dates: start: 20030911, end: 20041117
  3. BUDESONIDE [Concomitant]
     Indication: ASTHMA
     Route: 055
     Dates: start: 19961201
  4. TERBUTALINE SULFATE [Concomitant]
     Indication: ASTHMA
     Route: 055
     Dates: start: 19961201
  5. MELOXICAM [Concomitant]
     Indication: OSTEOARTHRITIS
     Route: 048
     Dates: start: 20021106
  6. ORLISTAT [Concomitant]
     Indication: OVERWEIGHT
     Route: 065
     Dates: start: 20030618

REACTIONS (2)
  - BUNDLE BRANCH BLOCK LEFT [None]
  - MYOCARDIAL INFARCTION [None]
